FAERS Safety Report 16894607 (Version 1)
Quarter: 2019Q4

REPORT INFORMATION
  Report Type: Spontaneous
  Country: US (occurrence: US)
  Receive Date: 20191008
  Receipt Date: 20191008
  Transmission Date: 20200122
  Serious: No
  Sender: FDA-Public Use
  Company Number: US-PFIZER INC-2019428648

PATIENT
  Age: 44 Year
  Sex: Male

DRUGS (1)
  1. XELJANZ [Suspect]
     Active Substance: TOFACITINIB CITRATE
     Dosage: 10 MG, UNK (X60)
     Dates: start: 20190901, end: 20191002

REACTIONS (3)
  - Diarrhoea [Unknown]
  - Product dose omission [Unknown]
  - Colitis [Unknown]

NARRATIVE: CASE EVENT DATE: 2019
